FAERS Safety Report 5363946-6 (Version None)
Quarter: 2007Q2

REPORT INFORMATION
  Report Type: 
  Country: None (occurrence: None)
  Receive Date: 20070620
  Receipt Date: 20070608
  Transmission Date: 20071010
  Serious: Yes (Other)
  Sender: FDA-Public Use
  Company Number: US-ELI_LILLY_AND_COMPANY-US200706001879

PATIENT
  Age: 32 Year
  Sex: Female

DRUGS (2)
  1. CYMBALTA [Suspect]
     Indication: BACK PAIN
     Dosage: 20 MG, DAILY (1/D)
     Route: 048
     Dates: start: 20061201, end: 20070603
  2. LYRICA [Concomitant]

REACTIONS (12)
  - ABNORMAL BEHAVIOUR [None]
  - CONFUSIONAL STATE [None]
  - DEHYDRATION [None]
  - FALL [None]
  - FEELING COLD [None]
  - LOSS OF CONSCIOUSNESS [None]
  - PANIC ATTACK [None]
  - SCREAMING [None]
  - SKIN DISCOLOURATION [None]
  - SPEECH DISORDER [None]
  - SUICIDAL BEHAVIOUR [None]
  - TREMOR [None]
